FAERS Safety Report 10909919 (Version 1)
Quarter: 2015Q1

REPORT INFORMATION
  Report Type: Spontaneous
  Country: US (occurrence: US)
  Receive Date: 20150312
  Receipt Date: 20150312
  Transmission Date: 20150721
  Serious: No
  Sender: FDA-Public Use
  Company Number: US-SA-2014SA135184

PATIENT
  Age: 81 Year
  Sex: Male

DRUGS (3)
  1. NASACORT ALLERGY 24HR [Suspect]
     Active Substance: TRIAMCINOLONE ACETONIDE
     Indication: SEASONAL ALLERGY
     Dosage: DOSE:1 PUFF(S)
     Route: 045
  2. NASACORT ALLERGY 24HR [Suspect]
     Active Substance: TRIAMCINOLONE ACETONIDE
     Indication: SEASONAL ALLERGY
     Dosage: DOSE:2 PUFF(S)
     Route: 045
  3. ZYRTEC [Suspect]
     Active Substance: CETIRIZINE HYDROCHLORIDE
     Route: 065

REACTIONS (3)
  - Dyspnoea [Unknown]
  - Drug ineffective [Unknown]
  - Nasal congestion [Unknown]
